FAERS Safety Report 18923825 (Version 2)
Quarter: 2021Q2

REPORT INFORMATION
  Report Type: Report from Study
  Country: US (occurrence: US)
  Receive Date: 20210222
  Receipt Date: 20210407
  Transmission Date: 20210717
  Serious: Yes (Hospitalization)
  Sender: FDA-Public Use
  Company Number: US-PFIZER INC-2021156447

PATIENT
  Age: 46 Year
  Sex: Female
  Weight: 73.8 kg

DRUGS (2)
  1. BINIMETINIB [Suspect]
     Active Substance: BINIMETINIB
     Indication: COLORECTAL CANCER
     Dosage: UNK, BID
     Route: 048
     Dates: start: 20200129, end: 20210129
  2. PALBOCICLIB [Suspect]
     Active Substance: PALBOCICLIB
     Indication: COLORECTAL CANCER
     Dosage: UNK, DAILY
     Route: 048
     Dates: start: 20210129, end: 20210129

REACTIONS (4)
  - Nausea [Unknown]
  - Hepatic failure [Unknown]
  - Vomiting [Unknown]
  - Abdominal pain [Unknown]

NARRATIVE: CASE EVENT DATE: 20210130
